FAERS Safety Report 15935569 (Version 2)
Quarter: 2019Q2

REPORT INFORMATION
  Report Type: Spontaneous
  Country: FR (occurrence: FR)
  Receive Date: 20190208
  Receipt Date: 20190405
  Transmission Date: 20190711
  Serious: Yes (Hospitalization, Congenital Anomaly)
  Sender: FDA-Public Use
  Company Number: FR-ACCORD-106120

PATIENT

DRUGS (5)
  1. PAROXETINE. [Suspect]
     Active Substance: PAROXETINE
     Indication: DEPRESSION
     Route: 064
     Dates: start: 201702, end: 201711
  2. SERTRALINE [Suspect]
     Active Substance: SERTRALINE HYDROCHLORIDE
     Indication: PRODUCT USED FOR UNKNOWN INDICATION
     Route: 064
     Dates: start: 201803, end: 201804
  3. TANGANIL [Suspect]
     Active Substance: ACETYLLEUCINE
     Indication: PRODUCT USED FOR UNKNOWN INDICATION
     Route: 064
  4. RITALINE [Suspect]
     Active Substance: METHYLPHENIDATE HYDROCHLORIDE
     Indication: PRODUCT USED FOR UNKNOWN INDICATION
     Route: 064
  5. TIAPROFENIC ACID [Suspect]
     Active Substance: TIAPROFENIC ACID
     Indication: PRODUCT USED FOR UNKNOWN INDICATION
     Route: 064

REACTIONS (3)
  - Foetal exposure during pregnancy [Unknown]
  - Heart disease congenital [Not Recovered/Not Resolved]
  - Carotid sinus syndrome [Not Recovered/Not Resolved]

NARRATIVE: CASE EVENT DATE: 20180423
